FAERS Safety Report 6121028-X (Version None)
Quarter: 2009Q1

REPORT INFORMATION
  Report Type: 
  Country: None (occurrence: None)
  Receive Date: 20090317
  Receipt Date: 20090310
  Transmission Date: 20090719
  Serious: Yes (Other)
  Sender: FDA-Public Use
  Company Number: PHEH2009US01269

PATIENT
  Sex: Female

DRUGS (5)
  1. EXELON [Suspect]
     Indication: DEMENTIA ALZHEIMER'S TYPE
     Dosage: 9.5 MG, QD
     Route: 062
     Dates: start: 20071002, end: 20090106
  2. EXELON [Suspect]
     Indication: COGNITIVE DISORDER
  3. ZYPREXA [Suspect]
     Dosage: 2.5 MG, QD
  4. CELEXA [Concomitant]
     Dosage: 40 MG, QD
  5. LORAZEPAM [Concomitant]
     Dosage: 0.5 MG, QD

REACTIONS (4)
  - AGITATION [None]
  - COGNITIVE DISORDER [None]
  - MINI MENTAL STATUS EXAMINATION ABNORMAL [None]
  - PARKINSONISM [None]
